FAERS Safety Report 7854455 (Version 3)
Quarter: 2019Q2

REPORT INFORMATION
  Report Type: Spontaneous
  Country: DK (occurrence: DK)
  Receive Date: 20110314
  Receipt Date: 20190604
  Transmission Date: 20190711
  Serious: Yes (Death, Other)
  Sender: FDA-Public Use
  Company Number: DK-ELI_LILLY_AND_COMPANY-DK201103002961

PATIENT
  Sex: Female

DRUGS (4)
  1. FLUOXETINE HYDROCHLORIDE. [Suspect]
     Active Substance: FLUOXETINE HYDROCHLORIDE
     Indication: DEPRESSION
     Dosage: 20 MG, DAILY
     Route: 064
  2. FLUOXETINE HYDROCHLORIDE. [Suspect]
     Active Substance: FLUOXETINE HYDROCHLORIDE
     Dosage: 20 MG, DAILY
     Route: 063
  3. FLUOXETINE HYDROCHLORIDE. [Suspect]
     Active Substance: FLUOXETINE HYDROCHLORIDE
     Indication: DEPRESSION
     Dosage: 20 MG, DAILY
     Route: 064
  4. FLUOXETINE HYDROCHLORIDE. [Suspect]
     Active Substance: FLUOXETINE HYDROCHLORIDE
     Dosage: 20 MG, DAILY
     Route: 063

REACTIONS (11)
  - Neonatal anoxia [Fatal]
  - Foetal exposure during pregnancy [Fatal]
  - Drug withdrawal syndrome neonatal [Fatal]
  - Low birth weight baby [Fatal]
  - Cardiovascular disorder [Fatal]
  - Premature baby [Fatal]
  - Neonatal pneumonia [Fatal]
  - Jaundice neonatal [Fatal]
  - Pericardial effusion [Fatal]
  - Exposure via breast milk [Fatal]
  - Cerebral disorder [Fatal]

NARRATIVE: CASE EVENT DATE: 20080821
